FAERS Safety Report 9125544 (Version 1)
Quarter: 2013Q1

REPORT INFORMATION
  Report Type: Spontaneous
  Country: US (occurrence: US)
  Receive Date: 20130227
  Receipt Date: 20130227
  Transmission Date: 20140127
  Serious: Yes (Other)
  Sender: FDA-Public Use
  Company Number: US-PFIZER INC-2013064410

PATIENT
  Age: 50 Year
  Sex: 0

DRUGS (7)
  1. VIAGRA [Suspect]
     Dosage: 25 MG, 3X/DAY FOR 30 DAYS
     Route: 048
  2. ASPIRIN [Concomitant]
     Dosage: 81 MG, 1X/DAY
     Route: 048
  3. WELCHOL [Concomitant]
     Dosage: TAKE 3 TABLET (625 MGX3) TWO TIMES A DAY
     Route: 048
  4. CELLCEPT [Concomitant]
     Dosage: 500 MG, 2X/DAY
     Route: 048
  5. PRILOSEC [Concomitant]
     Dosage: 40 MG, 2X/DAY
     Route: 048
  6. AMBIEN [Concomitant]
     Dosage: 5 MG, 1 TABLET BY MOUTH AS NEEDED
     Route: 048
  7. MULTIVITAMINS [Concomitant]
     Dosage: ONE TABLET ONCE DAILY
     Route: 048

REACTIONS (2)
  - Pulmonary fibrosis [Not Recovered/Not Resolved]
  - Gastrooesophageal reflux disease [Not Recovered/Not Resolved]
